FAERS Safety Report 21094085 (Version 1)
Quarter: 2022Q3

REPORT INFORMATION
  Report Type: Other
  Country: TR (occurrence: None)
  Receive Date: 20220718
  Receipt Date: 20220718
  Transmission Date: 20221026
  Serious: Yes (Hospitalization, Other)
  Sender: FDA-Public Use
  Company Number: TR-Navinta LLC-000284

PATIENT
  Age: 24 Year
  Sex: Female

DRUGS (2)
  1. PENICILLAMINE [Suspect]
     Active Substance: PENICILLAMINE
     Indication: Hepato-lenticular degeneration
     Dosage: 2 X 600 MG
  2. ZINC [Concomitant]
     Active Substance: ZINC
     Indication: Hepato-lenticular degeneration
     Dosage: 3 X 50 MG

REACTIONS (3)
  - Hepatic encephalopathy [Recovered/Resolved]
  - Disseminated intravascular coagulation [Recovered/Resolved]
  - Lethargy [Recovered/Resolved]
